FAERS Safety Report 9781252 (Version 1)
Quarter: 2013Q4

REPORT INFORMATION
  Report Type: Spontaneous
  Country: IT (occurrence: IT)
  Receive Date: 20131224
  Receipt Date: 20131224
  Transmission Date: 20140711
  Serious: Yes (Hospitalization)
  Sender: FDA-Public Use
  Company Number: IT-SA-2013SA131327

PATIENT
  Age: 83 Year
  Sex: Female

DRUGS (5)
  1. LASIX [Suspect]
     Indication: CARDIAC FAILURE
     Route: 048
     Dates: start: 20130724, end: 20130810
  2. COTAREG [Suspect]
     Indication: CARDIAC FAILURE
     Route: 048
     Dates: start: 20130627, end: 20130810
  3. ASCRIPTIN [Concomitant]
  4. GLUCOBAY [Concomitant]
  5. HUMALOG [Concomitant]

REACTIONS (2)
  - Posture abnormal [Recovering/Resolving]
  - Hyponatraemia [Recovering/Resolving]
